FAERS Safety Report 23829137 (Version 1)
Quarter: 2024Q2

REPORT INFORMATION
  Report Type: Spontaneous
  Country: US (occurrence: US)
  Receive Date: 20240508
  Receipt Date: 20240508
  Transmission Date: 20240716
  Serious: No
  Sender: FDA-Public Use
  Company Number: US-UCBSA-2024008022

PATIENT
  Age: 35 Year
  Sex: Female
  Weight: 67.574 kg

DRUGS (1)
  1. CIMZIA [Suspect]
     Active Substance: CERTOLIZUMAB PEGOL
     Indication: Ankylosing spondylitis
     Dosage: 400 MILLIGRAM, EV 2 WEEKS(QOW) (DAY 1, 15 AND 29)
     Route: 058
     Dates: start: 20240120

REACTIONS (3)
  - Injection site erythema [Recovered/Resolved]
  - Application site pruritus [Recovered/Resolved]
  - Syringe issue [Unknown]

NARRATIVE: CASE EVENT DATE: 20240203
